FAERS Safety Report 24251700 (Version 2)
Quarter: 2024Q4

REPORT INFORMATION
  Report Type: Spontaneous
  Country: US (occurrence: US)
  Receive Date: 20240827
  Receipt Date: 20241024
  Transmission Date: 20250115
  Serious: Yes (Other)
  Sender: NOVO NORDISK
  Company Number: US-NOVOPROD-1273169

PATIENT
  Age: 71 Year
  Sex: Female

DRUGS (2)
  1. OZEMPIC [Suspect]
     Active Substance: SEMAGLUTIDE
     Indication: Type 2 diabetes mellitus
     Dosage: 1 MG, QW
     Route: 058
     Dates: start: 202303
  2. CELEBREX [Concomitant]
     Active Substance: CELECOXIB
     Indication: Spondylitis
     Dosage: UNK

REACTIONS (8)
  - Spondylitis [Unknown]
  - Condition aggravated [Unknown]
  - Arthropathy [Unknown]
  - Condition aggravated [Unknown]
  - Metabolic disorder [Unknown]
  - Increased appetite [Unknown]
  - Blood glucose increased [Unknown]
  - Drug ineffective [Unknown]

NARRATIVE: CASE EVENT DATE: 20240701
